FAERS Safety Report 8567169-9 (Version None)
Quarter: 2012Q3

REPORT INFORMATION
  Report Type: 
  Country: None (occurrence: None)
  Receive Date: 20120803
  Receipt Date: 20110912
  Transmission Date: 20120928
  Serious: No
  Sender: FDA-Public Use
  Company Number: US-ABBOTT-11P-163-0853712-00

PATIENT
  Sex: Female
  Weight: 94.432 kg

DRUGS (14)
  1. CALTRATE D [Concomitant]
     Indication: BONE DISORDER
  2. PREMARIN [Concomitant]
     Indication: HOT FLUSH
  3. ACTOS [Concomitant]
     Indication: DIABETES MELLITUS
  4. WELLBUTRIN [Concomitant]
     Indication: PRODUCT USED FOR UNKNOWN INDICATION
  5. LISINOPRIL [Concomitant]
     Indication: HYPERTENSION
  6. WELCHOL [Concomitant]
     Indication: BLOOD CHOLESTEROL INCREASED
  7. NIASPAN [Suspect]
     Dates: start: 20110101
  8. SINGULAIR [Concomitant]
     Indication: HYPERSENSITIVITY
  9. ERYTHROMYCIN [Concomitant]
     Indication: GASTRIC DISORDER
  10. NEXIUM [Concomitant]
     Indication: DYSPEPSIA
  11. VITAMIN D [Concomitant]
     Indication: PRODUCT USED FOR UNKNOWN INDICATION
  12. NIASPAN [Suspect]
     Indication: DIABETES MELLITUS
     Dates: start: 20100501, end: 20110101
  13. GLYPIZIDE [Concomitant]
     Indication: DIABETES MELLITUS
  14. CLONAZEPAM [Concomitant]
     Indication: PRODUCT USED FOR UNKNOWN INDICATION

REACTIONS (4)
  - PRURITUS [None]
  - ERYTHEMA [None]
  - PARAESTHESIA [None]
  - SKIN WARM [None]
